FAERS Safety Report 21473788 (Version 1)
Quarter: 2022Q4

REPORT INFORMATION
  Report Type: Spontaneous
  Country: DE (occurrence: DE)
  Receive Date: 20221018
  Receipt Date: 20221018
  Transmission Date: 20230112
  Serious: Yes (Hospitalization)
  Sender: FDA-Public Use
  Company Number: DE-ADRED-04409-02

PATIENT
  Age: 80 Year
  Sex: Male

DRUGS (6)
  1. PACLITAXEL [Suspect]
     Active Substance: PACLITAXEL
     Indication: Product used for unknown indication
     Dosage: 80 MG, NK
     Route: 065
  2. Blopress 8mg Plus 12,5mg [Concomitant]
     Indication: Product used for unknown indication
     Dosage: 8|12.5 MG, NK
     Route: 065
  3. CANDESARTAN CILEXETIL [Concomitant]
     Active Substance: CANDESARTAN CILEXETIL
     Indication: Product used for unknown indication
     Dosage: 8|12.5 MG, NK
     Route: 065
  4. PANTOPRAZOLE [Concomitant]
     Active Substance: PANTOPRAZOLE
     Indication: Product used for unknown indication
     Dosage: 40 MG, 1-0-0-0
     Route: 065
  5. ATEZOLIZUMAB [Concomitant]
     Active Substance: ATEZOLIZUMAB
     Indication: Product used for unknown indication
     Dosage: NK MG / 2 WEEKS, NK
     Route: 065
  6. METOPROLOL [Concomitant]
     Active Substance: METOPROLOL
     Indication: Product used for unknown indication
     Dosage: 47.5 MG, 1-0-0-0
     Route: 065

REACTIONS (3)
  - General physical health deterioration [None]
  - Pyrexia [None]
  - Infection [None]
